FAERS Safety Report 5034251-2 (Version None)
Quarter: 2006Q2

REPORT INFORMATION
  Report Type: 
  Country: None (occurrence: None)
  Receive Date: 20060626
  Receipt Date: 20060619
  Transmission Date: 20061013
  Serious: Yes (Life-Threatening)
  Sender: FDA-Public Use
  Company Number: 2006AP02845

PATIENT
  Age: 16 Year
  Sex: Female
  Weight: 63.6 kg

DRUGS (4)
  1. 0.5% MARCAINE SPINAL HEAVY [Suspect]
     Indication: CAESAREAN SECTION
     Route: 037
     Dates: start: 20060503, end: 20060503
  2. 0.5% MARCAINE SPINAL HEAVY [Suspect]
     Indication: SALPINGOPLASTY
     Route: 037
     Dates: start: 20060503, end: 20060503
  3. 0.5% MARCAINE SPINAL HEAVY [Suspect]
     Indication: APPENDICECTOMY
     Route: 037
     Dates: start: 20060503, end: 20060503
  4. MORPHINE [Concomitant]
     Indication: ANALGESIC EFFECT
     Route: 042
     Dates: start: 20060503, end: 20060503

REACTIONS (2)
  - BRADYARRHYTHMIA [None]
  - DRUG EXPOSURE DURING PREGNANCY [None]
